FAERS Safety Report 7224986-5 (Version None)
Quarter: 2011Q1

REPORT INFORMATION
  Report Type: 
  Country: None (occurrence: None)
  Receive Date: 20110107
  Receipt Date: 20110107
  Transmission Date: 20110831
  Serious: No
  Sender: FDA-Public Use
  Company Number: None

PATIENT
  Age: 89 Year
  Sex: Male

DRUGS (1)
  1. LEVAQUIN [Suspect]
     Dosage: 500 MG DAILY IV PIGGYBACK
     Route: 042
     Dates: start: 20110104, end: 20110104

REACTIONS (1)
  - DRUG HYPERSENSITIVITY [None]
